FAERS Safety Report 11042832 (Version 2)
Quarter: 2016Q2

REPORT INFORMATION
  Report Type: Spontaneous
  Country: US (occurrence: US)
  Receive Date: 20150417
  Receipt Date: 20160407
  Transmission Date: 20160815
  Serious: Yes (Death)
  Sender: FDA-Public Use
  Company Number: US-LUNDBECK-DKLU1111135

PATIENT
  Age: 0 Day
  Sex: Male

DRUGS (5)
  1. SABRIL [Suspect]
     Active Substance: VIGABATRIN
     Route: 048
  2. MIDOZALAM [Concomitant]
     Indication: SEDATION
     Route: 065
  3. SABRIL [Suspect]
     Active Substance: VIGABATRIN
     Dosage: INCREASED
     Route: 048
     Dates: start: 20150222
  4. SABRIL [Suspect]
     Active Substance: VIGABATRIN
     Indication: INFANTILE SPASMS
     Route: 048
     Dates: start: 20150219
  5. PREDNISONE. [Concomitant]
     Active Substance: PREDNISONE
     Indication: RESPIRATORY DISORDER
     Route: 065

REACTIONS (3)
  - Bronchopulmonary dysplasia [Fatal]
  - Premature baby [Fatal]
  - Pulmonary hypertension [Fatal]

NARRATIVE: CASE EVENT DATE: 20140316
